FAERS Safety Report 21512326 (Version 1)
Quarter: 2022Q4

REPORT INFORMATION
  Report Type: Spontaneous
  Country: US (occurrence: None)
  Receive Date: 20221027
  Receipt Date: 20221027
  Transmission Date: 20230113
  Serious: No
  Sender: FDA-Public Use
  Company Number: US-Ultragenyx Pharmaceutical Inc.-US-UGNX-22-00664

PATIENT
  Sex: Male
  Weight: 122.47 kg

DRUGS (2)
  1. DOJOLVI [Suspect]
     Active Substance: TRIHEPTANOIN
     Indication: Carnitine palmitoyltransferase deficiency
     Dosage: START WITH 2 ML 4 TIMES A DAY AND INCREASE BY 2 ML/DOSE EVERY 3 DAYS TO REACH 10 ML 4 TIMES A DAY
     Route: 048
     Dates: start: 20211115
  2. SKYRIZI [Concomitant]
     Active Substance: RISANKIZUMAB-RZAA
     Indication: Product used for unknown indication

REACTIONS (1)
  - Adverse drug reaction [Unknown]
